FAERS Safety Report 11216639 (Version 1)
Quarter: 2015Q2

REPORT INFORMATION
  Report Type: Spontaneous
  Country: US (occurrence: None)
  Receive Date: 20150623
  Receipt Date: 20150623
  Transmission Date: 20150821
  Serious: Yes (Disabling, Other)
  Sender: FDA-Public Use
  Company Number: None

PATIENT
  Age: 59 Year
  Sex: Female
  Weight: 94.8 kg

DRUGS (7)
  1. SUPER B COMPLEX [Concomitant]
     Active Substance: CYANOCOBALAMIN\DEXPANTHENOL\NIACINAMIDE\PYRIDOXINE HYDROCHLORIDE\RIBOFLAVIN 5^-PHOSPHATE SODIUM\THIAMINE HYDROCHLORIDE\VITAMIN B COMPLEX
  2. TOVIAZ [Concomitant]
     Active Substance: FESOTERODINE FUMARATE
  3. IRON [Concomitant]
     Active Substance: IRON
  4. DULOXETINE HCL [Suspect]
     Active Substance: DULOXETINE HYDROCHLORIDE
     Indication: DEPRESSION
     Dosage: 2 PILLS
     Route: 048
     Dates: start: 20150104, end: 20150621
  5. DULOXETINE HCL [Suspect]
     Active Substance: DULOXETINE HYDROCHLORIDE
     Indication: ANXIETY
     Dosage: 2 PILLS
     Route: 048
     Dates: start: 20150104, end: 20150621
  6. POTASSIUM [Concomitant]
     Active Substance: POTASSIUM
  7. PROPRANOLOL HCL [Concomitant]
     Active Substance: PROPRANOLOL HYDROCHLORIDE

REACTIONS (6)
  - Gambling [None]
  - Depression [None]
  - Anxiety [None]
  - Fatigue [None]
  - Product substitution issue [None]
  - Drug withdrawal syndrome [None]

NARRATIVE: CASE EVENT DATE: 20150101
